FAERS Safety Report 9753840 (Version 1)
Quarter: 2013Q4

REPORT INFORMATION
  Report Type: Spontaneous
  Country: US (occurrence: US)
  Receive Date: 20131213
  Receipt Date: 20131213
  Transmission Date: 20140711
  Serious: No
  Sender: FDA-Public Use
  Company Number: US-GILEAD-2010-0027657

PATIENT
  Sex: Female

DRUGS (11)
  1. LETAIRIS [Suspect]
     Indication: PULMONARY ARTERIAL HYPERTENSION
     Route: 048
     Dates: start: 20100219
  2. OYSTER CALCIUM [Suspect]
  3. OXYGEN [Concomitant]
  4. FUROSEMIDE [Concomitant]
  5. LEVOTHYROXINE [Concomitant]
  6. BISOPROLOL [Concomitant]
  7. KLOR-CON [Concomitant]
  8. MEDROXYPROGESTERONE [Concomitant]
  9. MULTIVITAMIN [Concomitant]
  10. TYLENOL [Concomitant]
  11. HORIZON NASAL CPAP [Concomitant]

REACTIONS (1)
  - Nasal congestion [Unknown]
